FAERS Safety Report 6827792-6 (Version None)
Quarter: 2010Q3

REPORT INFORMATION
  Report Type: 
  Country: None (occurrence: None)
  Receive Date: 20100709
  Receipt Date: 20070129
  Transmission Date: 20110219
  Serious: Yes (Other)
  Sender: FDA-Public Use
  Company Number: US-PFIZER INC-2007008082

PATIENT
  Sex: Female
  Weight: 74.8 kg

DRUGS (10)
  1. CHANTIX [Suspect]
     Indication: EX-TOBACCO USER
     Dosage: DAILY
     Dates: start: 20070116
  2. ALTACE [Concomitant]
  3. NEXIUM [Concomitant]
  4. LIPITOR [Concomitant]
  5. ADVAIR DISKUS 100/50 [Concomitant]
  6. ALBUTEROL [Concomitant]
  7. ACIDOPHILUS [Concomitant]
  8. CALCIUM MAGNESIUM ZINC [Concomitant]
  9. ALL OTHER THERAPEUTIC PRODUCTS [Concomitant]
  10. ALL OTHER THERAPEUTIC PRODUCTS [Concomitant]

REACTIONS (8)
  - ABDOMINAL DISCOMFORT [None]
  - ABDOMINAL DISTENSION [None]
  - DYSPNOEA [None]
  - FATIGUE [None]
  - FLATULENCE [None]
  - FOOD INTOLERANCE [None]
  - HEADACHE [None]
  - NAUSEA [None]
